FAERS Safety Report 14519517 (Version 1)
Quarter: 2018Q1

REPORT INFORMATION
  Report Type: Spontaneous
  Country: US (occurrence: US)
  Receive Date: 20180209
  Receipt Date: 20180209
  Transmission Date: 20180509
  Serious: Yes (Other)
  Sender: FDA-Public Use
  Company Number: None

PATIENT
  Age: 53 Year
  Sex: Female
  Weight: 101.7 kg

DRUGS (16)
  1. PAIN MEDICATION [Concomitant]
     Active Substance: UNSPECIFIED INGREDIENT
  2. DULOXETINE. [Suspect]
     Active Substance: DULOXETINE
     Indication: PAIN
     Dosage: ?          QUANTITY:12 CAPSULE(S);OTHER FREQUENCY:EVERY OTHER DAY;?
     Route: 048
  3. ALEVE [Concomitant]
     Active Substance: NAPROXEN SODIUM
  4. NASALCORT [Concomitant]
  5. MELOXICAM. [Concomitant]
     Active Substance: MELOXICAM
  6. ALBUTEROL. [Concomitant]
     Active Substance: ALBUTEROL
  7. WELLBUTRIN [Concomitant]
     Active Substance: BUPROPION HYDROCHLORIDE
  8. TOPIRAMATE. [Concomitant]
     Active Substance: TOPIRAMATE
  9. BENADRYL [Concomitant]
     Active Substance: DIPHENHYDRAMINE HYDROCHLORIDE
  10. SEREVENT DISKUS [Concomitant]
     Active Substance: SALMETEROL XINAFOATE
  11. LEVOTHYROXINE. [Concomitant]
     Active Substance: LEVOTHYROXINE
  12. MIRAPEX [Concomitant]
     Active Substance: PRAMIPEXOLE DIHYDROCHLORIDE
  13. NARATRIPTAN [Concomitant]
     Active Substance: NARATRIPTAN HYDROCHLORIDE
  14. TIZANIDINE. [Concomitant]
     Active Substance: TIZANIDINE
  15. ONDANSETRON [Concomitant]
     Active Substance: ONDANSETRON
  16. LIDOCAINE. [Concomitant]
     Active Substance: LIDOCAINE

REACTIONS (18)
  - Pyrexia [None]
  - Constipation [None]
  - Myalgia [None]
  - Dyskinesia [None]
  - Withdrawal syndrome [None]
  - Disturbance in attention [None]
  - Abdominal pain upper [None]
  - Nausea [None]
  - Vomiting [None]
  - Migraine [None]
  - Hypophagia [None]
  - Mood swings [None]
  - Hyperhidrosis [None]
  - Dizziness [None]
  - Nightmare [None]
  - Tremor [None]
  - Paraesthesia [None]
  - Fatigue [None]

NARRATIVE: CASE EVENT DATE: 20180122
